FAERS Safety Report 6093752-9 (Version None)
Quarter: 2009Q1

REPORT INFORMATION
  Report Type: 
  Country: None (occurrence: None)
  Receive Date: 20090223
  Receipt Date: 20090211
  Transmission Date: 20090719
  Serious: Yes (Hospitalization)
  Sender: FDA-Public Use
  Company Number: 2009AP000521

PATIENT
  Age: 61 Year
  Sex: Female

DRUGS (7)
  1. AMLODIPINE BESYLATE [Suspect]
     Indication: HYPERTENSION
     Dosage: 10 MG; TAB, PO, QD; PO
     Route: 048
     Dates: start: 19980101
  2. BENDROFLUMETHIAZIDE (BENDEOFLUMETHIAZIDE) [Suspect]
     Indication: HYPERTENSION
     Dosage: 2.5 MG, QD; PO
     Route: 048
     Dates: start: 19980101
  3. TAMOXIFEN CITRATE [Suspect]
     Dosage: 20 MG;QD;PO
     Route: 048
     Dates: start: 20080801
  4. GENTIAN INFUSION, CONCENTRATED (GENTIAN) [Concomitant]
  5. GENTIAN (GENTIAN) [Concomitant]
  6. HUMULUS LUPULUS EXTRACT (HUMULUS LUPULUS EXTRACT) [Concomitant]
  7. VALERIANA OFFICINALIS             (VALERIANA OFFICINALIS) [Concomitant]

REACTIONS (2)
  - APLASTIC ANAEMIA [None]
  - PANCYTOPENIA [None]
